FAERS Safety Report 9316823 (Version 1)
Quarter: 2013Q2

REPORT INFORMATION
  Report Type: Spontaneous
  Country: US (occurrence: None)
  Receive Date: 20130522
  Receipt Date: 20130522
  Transmission Date: 20140414
  Serious: Yes (Death)
  Sender: FDA-Public Use
  Company Number: UTC-032612

PATIENT
  Age: 70 Year
  Sex: Female
  Weight: 77.3 kg

DRUGS (1)
  1. TYVASO (6 MICROGRAM, AEROSOL FOR INHALATION) (TREPROSTINIL SODIUM) [Suspect]
     Indication: PULMONARY ARTERIAL HYPERTENSION
     Dosage: 312 MCG (78 MCG, 4 IN 1 D), INHALATION?
     Dates: start: 20111213

REACTIONS (1)
  - Death [None]
